APPROVED DRUG PRODUCT: HEPARIN SODIUM
Active Ingredient: HEPARIN SODIUM
Strength: 1,000 UNITS/ML
Dosage Form/Route: INJECTABLE;INJECTION
Application: A040008 | Product #001
Applicant: WATSON LABORATORIES INC
Approved: Oct 10, 1995 | RLD: No | RS: No | Type: DISCN